FAERS Safety Report 18119412 (Version 2)
Quarter: 2020Q4

REPORT INFORMATION
  Report Type: Report from Study
  Country: None (occurrence: CA)
  Receive Date: 20200806
  Receipt Date: 20201104
  Transmission Date: 20210113
  Serious: Yes (Other)
  Sender: FDA-Public Use
  Company Number: CA-ABBVIE-20K-028-3513454-00

PATIENT
  Sex: Female

DRUGS (4)
  1. RINVOQ [Suspect]
     Active Substance: UPADACITINIB
     Route: 048
  2. METHOTREXATE. [Concomitant]
     Active Substance: METHOTREXATE
  3. METHOTREXATE. [Concomitant]
     Active Substance: METHOTREXATE
     Indication: PRODUCT USED FOR UNKNOWN INDICATION
  4. RINVOQ [Suspect]
     Active Substance: UPADACITINIB
     Indication: RHEUMATOID ARTHRITIS
     Route: 048
     Dates: start: 20200515, end: 2020

REACTIONS (7)
  - Back pain [Unknown]
  - Adverse food reaction [Unknown]
  - Pulmonary mass [Unknown]
  - Lung neoplasm malignant [Unknown]
  - Diarrhoea [Not Recovered/Not Resolved]
  - Pain [Unknown]
  - Musculoskeletal chest pain [Unknown]

NARRATIVE: CASE EVENT DATE: 2020
